FAERS Safety Report 14116045 (Version 2)
Quarter: 2017Q4

REPORT INFORMATION
  Report Type: Report from Study
  Country: US (occurrence: US)
  Receive Date: 20171023
  Receipt Date: 20171030
  Transmission Date: 20180321
  Serious: Yes (Hospitalization)
  Sender: FDA-Public Use
  Company Number: US-ACTELION-A-NJ2016-147593

PATIENT
  Age: 52 Year
  Sex: Female
  Weight: 47.62 kg

DRUGS (4)
  1. VELETRI [Suspect]
     Active Substance: EPOPROSTENOL
     Indication: PULMONARY HYPERTENSION
     Dosage: 8 NG/KG, PER MIN
     Route: 042
     Dates: start: 20161224
  2. VELETRI [Suspect]
     Active Substance: EPOPROSTENOL
     Dosage: 14 NG/KG, PER MIN
     Route: 042
  3. VELETRI [Suspect]
     Active Substance: EPOPROSTENOL
     Dosage: 9 NG/KG, PER MIN
     Route: 042
  4. VELETRI [Suspect]
     Active Substance: EPOPROSTENOL
     Dosage: 6 NG/KG, PER MIN
     Route: 042

REACTIONS (22)
  - Central venous catheter removal [Unknown]
  - Muscle spasms [Unknown]
  - Headache [Unknown]
  - Hypotension [Unknown]
  - Nausea [Unknown]
  - Catheter site swelling [Unknown]
  - Weight increased [Unknown]
  - Oxygen saturation decreased [Unknown]
  - Catheter site pain [Unknown]
  - Diarrhoea [Unknown]
  - Abdominal pain [Unknown]
  - Catheter site related reaction [Unknown]
  - Vomiting [Recovered/Resolved]
  - Asthenia [Unknown]
  - Heart rate increased [Unknown]
  - Catheter placement [Unknown]
  - Catheter site erythema [Unknown]
  - Paranasal sinus discomfort [Unknown]
  - Device related infection [Unknown]
  - Chest discomfort [Unknown]
  - Nasal congestion [Unknown]
  - Flushing [Unknown]

NARRATIVE: CASE EVENT DATE: 20171012
